FAERS Safety Report 4735494-5 (Version None)
Quarter: 2005Q3

REPORT INFORMATION
  Report Type: 
  Country: None (occurrence: None)
  Receive Date: 20050801
  Receipt Date: 20050801
  Transmission Date: 20060218
  Serious: Yes (Life-Threatening, Hospitalization)
  Sender: FDA-Public Use
  Company Number: None

PATIENT
  Age: 61 Year
  Sex: Male
  Weight: 80.2867 kg

DRUGS (4)
  1. DILTIAZEM 240 MG SA [Suspect]
     Indication: HYPERTENSION
     Dosage: 240 MG QD
     Dates: start: 20040912, end: 20040915
  2. FELODIPINE [Concomitant]
  3. METOPROLOL [Concomitant]
  4. HYDRALAZINE [Concomitant]

REACTIONS (4)
  - BRADYCARDIA [None]
  - DYSPNOEA [None]
  - FATIGUE [None]
  - HYPERTENSION [None]
